FAERS Safety Report 16358861 (Version 1)
Quarter: 2019Q2

REPORT INFORMATION
  Report Type: Spontaneous
  Country: CA (occurrence: CA)
  Receive Date: 20190527
  Receipt Date: 20190527
  Transmission Date: 20190711
  Serious: Yes (Other)
  Sender: FDA-Public Use
  Company Number: CA-ASTRAZENECA-2019SE76365

PATIENT
  Age: 793 Month
  Sex: Male
  Weight: 90.7 kg

DRUGS (1)
  1. TAGRISSO [Suspect]
     Active Substance: OSIMERTINIB
     Indication: NON-SMALL CELL LUNG CANCER
     Route: 048
     Dates: start: 201703

REACTIONS (5)
  - Non-small cell lung cancer recurrent [Unknown]
  - Metastases to liver [Not Recovered/Not Resolved]
  - Malignant neoplasm progression [Not Recovered/Not Resolved]
  - Spinal compression fracture [Unknown]
  - Scar [Unknown]

NARRATIVE: CASE EVENT DATE: 201810
